FAERS Safety Report 9516178 (Version 1)
Quarter: 2013Q1

REPORT INFORMATION
  Report Type: Spontaneous
  Country: US (occurrence: None)
  Receive Date: 20130305
  Receipt Date: 20130305
  Transmission Date: 20140127
  Serious: Yes (Other)
  Sender: FDA-Public Use
  Company Number: 163-21880-12080918

PATIENT
  Age: 67 Year
  Sex: Male
  Weight: 76.2 kg

DRUGS (13)
  1. REVLIMID [Suspect]
     Indication: PLASMA CELL MYELOMA
     Dosage: 5 MG, 1 IN 1 D, PO
     Route: 048
     Dates: start: 201204
  2. VELCADE [Suspect]
     Indication: PLASMA CELL MYELOMA
  3. OXYCONTIN (OXYCODONE HYDROCHLORIDE) [Concomitant]
  4. LYRICA (PREGABALIN) [Concomitant]
  5. VITAMINS (VITAMINS) [Concomitant]
  6. SENOKOT (SENNA FRUIT) [Concomitant]
  7. DOCUSATE (DOCUSATE) [Concomitant]
  8. ALBUTEROL (SALBUTAMOL) [Concomitant]
  9. BACTRIM (BACTRIM) [Concomitant]
  10. VORICONAZOLE (VORICONAZOLE) [Concomitant]
  11. VITAMIN B3 (NICOTINAMIDE) [Concomitant]
  12. URSODIOL (URSODEOXYCHOLIC ACID) [Concomitant]
  13. VALACYCLOVIR (VALACICLOVIR) [Concomitant]

REACTIONS (3)
  - Neuropathy peripheral [None]
  - Fatigue [None]
  - Hyperhidrosis [None]
